FAERS Safety Report 4436183-7 (Version None)
Quarter: 2004Q3

REPORT INFORMATION
  Report Type: 
  Country: None (occurrence: None)
  Receive Date: 20040830
  Receipt Date: 20040506
  Transmission Date: 20050211
  Serious: Yes (Other)
  Sender: FDA-Public Use
  Company Number: US-BRISTOL-MYERS SQUIBB COMPANY-12581344

PATIENT
  Sex: Male

DRUGS (1)
  1. ERBITUX [Suspect]
     Dosage: ON 2ND OF 3 TREATMENT, 3RD TREATMENT HELD FOR 2 WEEKS

REACTIONS (2)
  - RASH [None]
  - WEIGHT DECREASED [None]
